FAERS Safety Report 16414195 (Version 2)
Quarter: 2019Q4

REPORT INFORMATION
  Report Type: Report from Study
  Country: BR (occurrence: BR)
  Receive Date: 20190611
  Receipt Date: 20191001
  Transmission Date: 20200122
  Serious: Yes (Other)
  Sender: FDA-Public Use
  Company Number: PHHY2019BR133136

PATIENT
  Sex: Male

DRUGS (1)
  1. COSENTYX [Suspect]
     Active Substance: SECUKINUMAB
     Indication: PRODUCT USED FOR UNKNOWN INDICATION
     Dosage: UNK
     Route: 065
     Dates: start: 2018

REACTIONS (7)
  - Oesophageal candidiasis [Unknown]
  - Oral candidiasis [Unknown]
  - Opportunistic infection [Unknown]
  - Allergy to arthropod bite [Unknown]
  - Gastrointestinal candidiasis [Unknown]
  - Onychomadesis [Unknown]
  - Fungal infection [Unknown]
